FAERS Safety Report 9739256 (Version 2)
Quarter: 2013Q4

REPORT INFORMATION
  Report Type: Spontaneous
  Country: US (occurrence: US)
  Receive Date: 20131209
  Receipt Date: 20131216
  Transmission Date: 20140711
  Serious: Yes (Hospitalization)
  Sender: FDA-Public Use
  Company Number: US-BAYER-2013-148631

PATIENT
  Age: 28 Year
  Sex: Female
  Weight: 69 kg

DRUGS (5)
  1. YASMIN [Suspect]
     Dosage: UNK
     Dates: start: 201005, end: 201012
  2. Z-PAK [Concomitant]
     Dosage: UNK
     Dates: start: 20101109
  3. ROBITUSSIN DAC [Concomitant]
     Dosage: UNK
     Dates: start: 20101109
  4. ALBUTEROL [Concomitant]
     Dosage: 2 PUFFS EVERY 4 HOURS
     Dates: start: 20101109, end: 20101209
  5. PREDNISONE [Concomitant]
     Dosage: 60 MG, UNK
     Dates: start: 20101209

REACTIONS (7)
  - Pulmonary embolism [Recovered/Resolved]
  - Injury [Recovered/Resolved]
  - Pain [None]
  - General physical health deterioration [Recovered/Resolved]
  - Anxiety [None]
  - Emotional distress [None]
  - Pain [Recovered/Resolved]
